FAERS Safety Report 4598775-4 (Version None)
Quarter: 2005Q1

REPORT INFORMATION
  Report Type: 
  Country: None (occurrence: None)
  Receive Date: 20050301
  Receipt Date: 20050215
  Transmission Date: 20050727
  Serious: Yes (Other)
  Sender: FDA-Public Use
  Company Number: 2005033094

PATIENT
  Sex: Female

DRUGS (4)
  1. NORVASC [Suspect]
     Indication: HYPERTENSION
     Dosage: 5 MG (5 MG, QD), ORAL
     Route: 048
  2. ALPRAZOLAM [Concomitant]
  3. DYAZIDE [Concomitant]
  4. LANSOPRAZOLE [Concomitant]

REACTIONS (7)
  - CARTILAGE INJURY [None]
  - CELLULITIS [None]
  - CORONARY ARTERY OCCLUSION [None]
  - DRUG INEFFECTIVE [None]
  - DYSPNOEA [None]
  - JOINT SPRAIN [None]
  - WEIGHT DECREASED [None]
